FAERS Safety Report 19154748 (Version 1)
Quarter: 2021Q2

REPORT INFORMATION
  Report Type: Spontaneous
  Country: CN (occurrence: CN)
  Receive Date: 20210419
  Receipt Date: 20210419
  Transmission Date: 20210717
  Serious: Yes (Other)
  Sender: FDA-Public Use
  Company Number: CN-PFIZER INC-2021389608

PATIENT
  Age: 7 Decade
  Sex: Male

DRUGS (1)
  1. VIAGRA [Suspect]
     Active Substance: SILDENAFIL CITRATE
     Indication: ERECTILE DYSFUNCTION
     Dosage: 0.1 G
     Route: 048

REACTIONS (4)
  - Retinal vascular disorder [Unknown]
  - Visual impairment [Unknown]
  - Drug ineffective [Recovered/Resolved]
  - Prescription drug used without a prescription [Unknown]
